FAERS Safety Report 4288035-3 (Version None)
Quarter: 2004Q1

REPORT INFORMATION
  Report Type: 
  Country: None (occurrence: None)
  Receive Date: 20040205
  Receipt Date: 20040122
  Transmission Date: 20041129
  Serious: Yes (Hospitalization)
  Sender: FDA-Public Use
  Company Number: 2004-BP-00484BP

PATIENT
  Age: 72 Year
  Sex: Female

DRUGS (11)
  1. MICARDIS [Suspect]
     Indication: CEREBROVASCULAR ACCIDENT PROPHYLAXIS
     Dosage: PO
     Route: 048
     Dates: start: 20030728, end: 20040101
  2. MICARDIS [Suspect]
     Indication: PROPHYLAXIS
     Dosage: PO
     Route: 048
     Dates: start: 20030728, end: 20040101
  3. RAMIPRIL [Suspect]
     Indication: CEREBROVASCULAR ACCIDENT PROPHYLAXIS
     Dosage: PO; 0.5 MG (NR) PO
     Route: 048
     Dates: start: 20030708, end: 20040101
  4. RAMIPRIL [Suspect]
     Indication: PROPHYLAXIS
     Dosage: PO; 0.5 MG (NR) PO
     Route: 048
     Dates: start: 20030708, end: 20040101
  5. RAMIPRIL [Suspect]
     Indication: CEREBROVASCULAR ACCIDENT PROPHYLAXIS
     Dosage: PO; 0.5 MG (NR) PO
     Route: 048
     Dates: start: 20040101
  6. RAMIPRIL [Suspect]
     Indication: PROPHYLAXIS
     Dosage: PO; 0.5 MG (NR) PO
     Route: 048
     Dates: start: 20040101
  7. ACETYLSALICYLIC ACID SRT [Concomitant]
  8. DILTIAZEM (DILTIAZEM) (NR) [Concomitant]
  9. STATINS (NR) [Concomitant]
  10. ORAL HYPOGLYCEMIC AGENT (NR) [Concomitant]
  11. NITRATES (NR) [Concomitant]

REACTIONS (1)
  - HYPERKALAEMIA [None]
